FAERS Safety Report 8065929-4 (Version None)
Quarter: 2012Q1

REPORT INFORMATION
  Report Type: 
  Country: None (occurrence: None)
  Receive Date: 20120124
  Receipt Date: 20120113
  Transmission Date: 20120608
  Serious: Yes (Life-Threatening)
  Sender: FDA-Public Use
  Company Number: FR-PFIZER INC-2012003116

PATIENT
  Age: 67 Year
  Sex: Female

DRUGS (16)
  1. LEXOMIL [Concomitant]
     Dosage: HALF TABLET AT NIGHT
     Route: 048
     Dates: start: 20111201
  2. CALCIPARINE [Suspect]
     Dosage: 0.4 ML (10000 UI/0.4ML)
     Route: 058
     Dates: start: 20111126
  3. LEXOMIL [Concomitant]
     Dosage: UNK
     Route: 048
     Dates: start: 20111130, end: 20111204
  4. FLUCONAZOLE [Suspect]
     Dosage: 100 MG, 2X/DAY
     Route: 042
     Dates: start: 20111117, end: 20111215
  5. LEVOTHYROXINE SODIUM [Suspect]
     Dosage: 20 DF, UNK
     Route: 048
     Dates: start: 20111129
  6. ATARAX [Suspect]
     Dosage: 25 MG, UNK
     Route: 048
     Dates: start: 20111125, end: 20111129
  7. DEBRIDAT [Suspect]
     Dosage: UNK
     Route: 042
     Dates: start: 20111117, end: 20111202
  8. VANCOMYCIN [Suspect]
     Dosage: UNK
     Route: 042
     Dates: start: 20111121, end: 20111127
  9. ACETAMINOPHEN [Concomitant]
     Dosage: 1 G, 3X/DAY
     Route: 048
     Dates: start: 20111130, end: 20111215
  10. PARACETAMOL [Concomitant]
     Dosage: 4 G, UNK
     Route: 042
     Dates: start: 20111125, end: 20111201
  11. PANTOPRAZOLE [Suspect]
     Dosage: 20 MG, UNK
     Route: 048
     Dates: start: 20111117, end: 20111214
  12. ASPEGIC 325 [Suspect]
     Dosage: 100 MG, UNK
     Route: 048
  13. IMIPENEM AND CILASTATIN SODIUM [Suspect]
     Dosage: 500 MG, 2X/DAY
     Route: 042
     Dates: start: 20111111, end: 20111214
  14. XANAX [Suspect]
     Dosage: 0.25 MG, UNK
     Route: 048
     Dates: start: 20111205, end: 20111214
  15. ASPEGIC 325 [Suspect]
     Dosage: 250 MG, UNK
     Route: 048
     Dates: start: 20111125
  16. DUPHALAC [Suspect]
     Dosage: UNK
     Route: 048
     Dates: end: 20111215

REACTIONS (1)
  - AGRANULOCYTOSIS [None]
